FAERS Safety Report 14246177 (Version 1)
Quarter: 2017Q4

REPORT INFORMATION
  Report Type: Spontaneous
  Country: US (occurrence: None)
  Receive Date: 20171201
  Receipt Date: 20171201
  Transmission Date: 20180321
  Serious: Yes (Hospitalization)
  Sender: FDA-Public Use
  Company Number: None

PATIENT
  Age: 35 Year
  Sex: Male
  Weight: 92.08 kg

DRUGS (1)
  1. ADALIMUMAB [Suspect]
     Active Substance: ADALIMUMAB
     Indication: CROHN^S DISEASE
     Route: 058
     Dates: start: 20170202, end: 20171021

REACTIONS (6)
  - Purpura [None]
  - Henoch-Schonlein purpura [None]
  - Arthralgia [None]
  - Rash [None]
  - Oedema [None]
  - Dizziness [None]

NARRATIVE: CASE EVENT DATE: 20171105
